FAERS Safety Report 21341115 (Version 1)
Quarter: 2022Q3

REPORT INFORMATION
  Report Type: Spontaneous
  Country: ZA (occurrence: ZA)
  Receive Date: 20220916
  Receipt Date: 20220916
  Transmission Date: 20221027
  Serious: Yes (Hospitalization, Other)
  Sender: FDA-Public Use
  Company Number: ZA-CIPLA LTD.-2022ZA05508

PATIENT
  Age: 31 Year
  Sex: Female

DRUGS (8)
  1. WARFARIN [Suspect]
     Active Substance: WARFARIN
     Indication: Deep vein thrombosis
     Dosage: 5 MILLIGRAM, QD
     Route: 048
     Dates: start: 20220619, end: 20220622
  2. WARFARIN [Suspect]
     Active Substance: WARFARIN
     Indication: Pulmonary embolism
  3. ENOXAPARIN SODIUM [Suspect]
     Active Substance: ENOXAPARIN SODIUM
     Indication: Deep vein thrombosis
     Dosage: 80 MILLIGRAM, BID
     Route: 058
     Dates: start: 20220619
  4. ENOXAPARIN SODIUM [Suspect]
     Active Substance: ENOXAPARIN SODIUM
     Indication: Pulmonary embolism
  5. LOPINAVIR\RITONAVIR [Concomitant]
     Active Substance: LOPINAVIR\RITONAVIR
     Indication: Retroviral infection
     Dosage: 250 MILLIGRAM, BID
     Route: 065
     Dates: start: 20220619
  6. FUROSEMIDE [Concomitant]
     Active Substance: FUROSEMIDE
     Indication: Pulmonary embolism
     Dosage: 400 MILLIGRAM, QD
     Route: 065
     Dates: start: 20220619
  7. SPIRONOLACTONE [Concomitant]
     Active Substance: SPIRONOLACTONE
     Indication: Pulmonary embolism
     Dosage: 25 MILLIGRAM, QD
     Route: 065
     Dates: start: 20220619
  8. ENALAPRIL [Concomitant]
     Active Substance: ENALAPRIL
     Indication: Pulmonary embolism
     Dosage: 2.5 MILLIGRAM, QD
     Route: 065
     Dates: start: 20220619

REACTIONS (6)
  - Fibrin D dimer increased [Unknown]
  - Blood fibrinogen increased [Unknown]
  - Prothrombin time abnormal [Unknown]
  - International normalised ratio increased [Unknown]
  - Epistaxis [Recovered/Resolved]
  - Haemorrhage [Recovered/Resolved]

NARRATIVE: CASE EVENT DATE: 20220621
